FAERS Safety Report 4754997-0 (Version None)
Quarter: 2005Q3

REPORT INFORMATION
  Report Type: 
  Country: None (occurrence: None)
  Receive Date: 20050825
  Receipt Date: 20050815
  Transmission Date: 20060218
  Serious: Yes (Death, Life-Threatening, Hospitalization)
  Sender: FDA-Public Use
  Company Number: 2005079807

PATIENT
  Age: 40 Year
  Sex: Male
  Weight: 75 kg

DRUGS (1)
  1. VIAGRA [Suspect]
     Indication: ILL-DEFINED DISORDER
     Dosage: (PROBABLY EVERY TWO WEEKS), ORAL
     Route: 048
     Dates: start: 20050425

REACTIONS (5)
  - ACUTE MYOCARDIAL INFARCTION [None]
  - ALCOHOL USE [None]
  - DRUG ABUSER [None]
  - ELECTROCARDIOGRAM ST SEGMENT ABNORMAL [None]
  - SMOKER [None]
